FAERS Safety Report 18840446 (Version 2)
Quarter: 2021Q2

REPORT INFORMATION
  Report Type: Spontaneous
  Country: DE (occurrence: DE)
  Receive Date: 20210203
  Receipt Date: 20210513
  Transmission Date: 20210717
  Serious: Yes (Death, Hospitalization, Other)
  Sender: FDA-Public Use
  Company Number: DE-JNJFOC-20210204910

PATIENT
  Age: 79 Year
  Sex: Male

DRUGS (4)
  1. RISPERDAL [Suspect]
     Active Substance: RISPERIDONE
     Indication: PARKINSON^S DISEASE
     Route: 048
     Dates: start: 2013
  2. RISPERDAL [Suspect]
     Active Substance: RISPERIDONE
     Indication: DEMENTIA ALZHEIMER^S TYPE
     Route: 048
     Dates: start: 20151008, end: 20151011
  3. HALDOL [Suspect]
     Active Substance: HALOPERIDOL
     Indication: PRODUCT USED FOR UNKNOWN INDICATION
     Route: 065
     Dates: start: 20151012
  4. RISPERDAL [Suspect]
     Active Substance: RISPERIDONE
     Indication: DELIRIUM

REACTIONS (9)
  - Urinary tract infection [Unknown]
  - Coma [Recovered/Resolved]
  - Fatigue [Unknown]
  - General physical health deterioration [Unknown]
  - Slow speech [Unknown]
  - Loss of consciousness [Unknown]
  - Death [Fatal]
  - Altered state of consciousness [Unknown]
  - Gastrointestinal motility disorder [Unknown]
